FAERS Safety Report 6818738-5 (Version None)
Quarter: 2010Q2

REPORT INFORMATION
  Report Type: 
  Country: None (occurrence: None)
  Receive Date: 20100630
  Receipt Date: 20100622
  Transmission Date: 20101027
  Serious: Yes (Other)
  Sender: FDA-Public Use
  Company Number: 8055025

PATIENT
  Age: 35 Year
  Sex: Female

DRUGS (4)
  1. KEPPRA [Suspect]
     Indication: PARTIAL SEIZURES
     Dosage: 750 MG BID ORAL
     Route: 048
     Dates: start: 20070101
  2. FOLIC ACID [Concomitant]
  3. LYRICA [Concomitant]
  4. GUTRON [Concomitant]

REACTIONS (5)
  - ABORTION SPONTANEOUS [None]
  - DRUG EXPOSURE DURING PREGNANCY [None]
  - PREGNANCY [None]
  - SEROCONVERSION TEST POSITIVE [None]
  - TOXOPLASMOSIS [None]
